FAERS Safety Report 5902165-9 (Version None)
Quarter: 2008Q3

REPORT INFORMATION
  Report Type: 
  Country: None (occurrence: None)
  Receive Date: 20080929
  Receipt Date: 20080917
  Transmission Date: 20090109
  Serious: Yes (Other)
  Sender: FDA-Public Use
  Company Number: US-PFIZER INC-2008079490

PATIENT
  Sex: Male
  Weight: 98.4 kg

DRUGS (11)
  1. CHANTIX [Suspect]
     Indication: SMOKING CESSATION THERAPY
     Dates: start: 20080703
  2. COREG [Concomitant]
  3. PLAVIX [Concomitant]
  4. DIGOXIN [Concomitant]
  5. SPIRONOLACTONE [Concomitant]
  6. SIMVASTATIN [Concomitant]
  7. MELOXICAM [Concomitant]
  8. AMBIEN [Concomitant]
  9. FOSINOPRIL SODIUM [Concomitant]
  10. MULTI-VITAMINS [Concomitant]
  11. FISH OIL [Concomitant]

REACTIONS (1)
  - ANXIETY [None]
